FAERS Safety Report 24874472 (Version 1)
Quarter: 2025Q1

REPORT INFORMATION
  Report Type: Report from Study
  Country: BY (occurrence: BY)
  Receive Date: 20250122
  Receipt Date: 20250122
  Transmission Date: 20250409
  Serious: Yes (Life-Threatening)
  Sender: MYLAN
  Company Number: BY-MYLANLABS-2025M1005227

PATIENT
  Age: 33 Year
  Sex: Male
  Weight: 62.7 kg

DRUGS (16)
  1. PRETOMANID [Suspect]
     Active Substance: PRETOMANID
     Indication: Antibiotic prophylaxis
     Dosage: 200 MILLIGRAM, QD (200 MG OD PO)
     Route: 048
     Dates: start: 20231219, end: 20240312
  2. PRETOMANID [Suspect]
     Active Substance: PRETOMANID
     Dosage: 200 MILLIGRAM, QD (200 MG OD PO)
     Route: 048
     Dates: start: 20240322
  3. BEDAQUILINE [Suspect]
     Active Substance: BEDAQUILINE
     Indication: Antibiotic prophylaxis
     Dosage: 400 MILLIGRAM, QD (400 MG OD FOR 2 WEEKS, THEN 200 MG TIW PO)
     Route: 048
     Dates: start: 20231219
  4. BEDAQUILINE [Suspect]
     Active Substance: BEDAQUILINE
     Dosage: 200 MILLIGRAM, 3XW (400 MG OD FOR 2 WEEKS, THEN 200 MG TIW PO)
     Route: 048
     Dates: end: 20240312
  5. BEDAQUILINE [Suspect]
     Active Substance: BEDAQUILINE
     Dosage: 200 MILLIGRAM, 3XW (400 MG OD FOR 2 WEEKS, THEN 200 MG TIW PO)
     Route: 048
     Dates: start: 20240322
  6. LINEZOLID [Suspect]
     Active Substance: LINEZOLID
     Indication: Antibiotic prophylaxis
     Dosage: 600 MILLIGRAM, QD (600 MG OD PO FOR 112 DOSES THEN 300 MG OD)
     Route: 048
     Dates: start: 20231219
  7. LINEZOLID [Suspect]
     Active Substance: LINEZOLID
     Dosage: 300 MILLIGRAM, QD (600 MG OD PO FOR 112 DOSES THEN 300 MG OD)
     Route: 048
     Dates: end: 20240312
  8. LINEZOLID [Suspect]
     Active Substance: LINEZOLID
     Dosage: 300 MILLIGRAM, QD (600 MG OD PO FOR 112 DOSES THEN 300 MG OD)
     Route: 048
     Dates: start: 20240322
  9. MOXIFLOXACIN [Suspect]
     Active Substance: MOXIFLOXACIN
     Indication: Antibiotic prophylaxis
     Dosage: 400 MILLIGRAM, QD (400 MG OD PO)
     Route: 048
     Dates: start: 20231219, end: 20240312
  10. MOXIFLOXACIN [Suspect]
     Active Substance: MOXIFLOXACIN
     Dosage: 400 MILLIGRAM, QD (400 MG OD PO)
     Route: 048
     Dates: start: 20240322
  11. PYRIDOXINE [Concomitant]
     Active Substance: PYRIDOXINE
     Indication: Prophylaxis
     Dosage: 100 MILLIGRAM, QD (100 MG DAILY ORALLY)
     Route: 048
     Dates: start: 20231219, end: 20240625
  12. LAMIVUDINE [Concomitant]
     Active Substance: LAMIVUDINE
     Indication: HIV infection
     Dosage: 150 MILLIGRAM, QD (1 TIME PER DAY)
     Route: 048
     Dates: start: 20240213
  13. LAMIVUDINE [Concomitant]
     Active Substance: LAMIVUDINE
     Route: 065
  14. ABACAVIR [Concomitant]
     Active Substance: ABACAVIR
     Indication: HIV infection
     Dosage: 300 MILLIGRAM, QD (1 TIME PER DAY)
     Route: 048
     Dates: start: 20240213
  15. ABACAVIR [Concomitant]
     Active Substance: ABACAVIR
     Route: 065
  16. DOLUTEGRAVIR [Concomitant]
     Active Substance: DOLUTEGRAVIR
     Indication: HIV infection
     Dosage: 50 MILLIGRAM, QD (1 TIME PER DAY)
     Route: 048
     Dates: start: 20210109

REACTIONS (2)
  - Acute kidney injury [Recovered/Resolved]
  - Hepatotoxicity [Recovered/Resolved]

NARRATIVE: CASE EVENT DATE: 20240212
